FAERS Safety Report 15774702 (Version 1)
Quarter: 2018Q4

REPORT INFORMATION
  Report Type: Spontaneous
  Country: TR (occurrence: TR)
  Receive Date: 20181230
  Receipt Date: 20181230
  Transmission Date: 20190205
  Serious: Yes (Other)
  Sender: FDA-Public Use
  Company Number: PHHY2018TR197400

PATIENT
  Age: 52 Year
  Sex: Male

DRUGS (1)
  1. METHYLPREDNISOLONE. [Suspect]
     Active Substance: METHYLPREDNISOLONE
     Indication: ENGRAFT FAILURE
     Route: 065

REACTIONS (4)
  - Thrombocytopenia [Unknown]
  - Engraft failure [Unknown]
  - Product use in unapproved indication [Unknown]
  - Mucosal haemorrhage [Unknown]
